FAERS Safety Report 14497654 (Version 1)
Quarter: 2018Q1

REPORT INFORMATION
  Report Type: Spontaneous
  Country: FR (occurrence: FR)
  Receive Date: 20180207
  Receipt Date: 20180207
  Transmission Date: 20180509
  Serious: Yes (Other)
  Sender: FDA-Public Use
  Company Number: PHHY2018FR015566

PATIENT
  Age: 46 Year
  Sex: Male
  Weight: 95 kg

DRUGS (3)
  1. TEGRETOL [Interacting]
     Active Substance: CARBAMAZEPINE
     Indication: EPILEPSY
     Dosage: 1000 MG, UNK
     Route: 048
  2. BARACLUDE [Concomitant]
     Active Substance: ENTECAVIR
     Indication: PRODUCT USED FOR UNKNOWN INDICATION
     Route: 065
  3. COSENTYX [Suspect]
     Active Substance: SECUKINUMAB
     Indication: PSORIATIC ARTHROPATHY
     Dosage: 1 DF, QD
     Route: 058
     Dates: start: 20161227

REACTIONS (2)
  - Epilepsy [Recovering/Resolving]
  - Drug monitoring procedure incorrectly performed [Recovered/Resolved]

NARRATIVE: CASE EVENT DATE: 2017
